FAERS Safety Report 9190882 (Version 1)
Quarter: 2013Q1

REPORT INFORMATION
  Report Type: Spontaneous
  Country: GB (occurrence: GB)
  Receive Date: 20130326
  Receipt Date: 20130326
  Transmission Date: 20140127
  Serious: Yes (Other)
  Sender: FDA-Public Use
  Company Number: GB-ELI_LILLY_AND_COMPANY-GB201303004748

PATIENT
  Age: 71 Year
  Sex: Male
  Weight: 103 kg

DRUGS (13)
  1. DULOXETINE HYDROCHLORIDE [Suspect]
     Indication: DEPRESSED MOOD
     Dosage: 60 MG, UNK
     Route: 048
     Dates: start: 20120522, end: 20121123
  2. ASPIRIN [Concomitant]
     Dosage: 75 MG, QD
     Route: 048
  3. ATORVASTATIN [Concomitant]
     Dosage: 80 MG, QD
     Route: 048
  4. BISOPROLOL [Concomitant]
     Dosage: 5 MG, QD
  5. CO-CODAMOL [Concomitant]
     Indication: PAIN
     Dosage: UNK, PRN
     Route: 048
  6. FENOFIBRATE [Concomitant]
     Dosage: 160 MG, QD
     Route: 048
  7. METFORMIN [Concomitant]
     Indication: DIABETES MELLITUS
     Dosage: 500 MG, UNK
  8. GLYCERYL TRINITRATE [Concomitant]
     Dosage: 400 MG, UNK
  9. NICORANDIL [Concomitant]
     Indication: ANGINA PECTORIS
     Dosage: 10 MG, BID
  10. NICORANDIL [Concomitant]
     Dosage: 20 MG, BID
  11. OMEPRAZOLE [Concomitant]
     Dosage: 10 MG, QD
  12. PERINDOPRIL ERBUMINE [Concomitant]
     Dosage: 4 MG, QD
     Route: 048
  13. SLOZEM [Concomitant]
     Dosage: 240 MG, QD
     Route: 048

REACTIONS (5)
  - Agitation [Recovered/Resolved]
  - Anger [Recovered/Resolved]
  - Emotional distress [Recovered/Resolved]
  - Hallucination [Recovered/Resolved]
  - Nightmare [Recovered/Resolved]
